FAERS Safety Report 8035689-1 (Version None)
Quarter: 2011Q4

REPORT INFORMATION
  Report Type: 
  Country: None (occurrence: None)
  Receive Date: 20111227
  Receipt Date: 20111213
  Transmission Date: 20120403
  Serious: Yes (Hospitalization, Other)
  Sender: FDA-Public Use
  Company Number: 2011SP058260

PATIENT
  Sex: Female

DRUGS (3)
  1. RIBAVIRIN [Suspect]
     Indication: HEPATITIS C
     Dates: start: 20110909
  2. TELAPREVIR [Suspect]
     Indication: HEPATITIS C
     Dates: start: 20110909
  3. PEG-INTRON [Suspect]
     Indication: HEPATITIS C
     Dates: start: 20110919

REACTIONS (5)
  - FATIGUE [None]
  - DECREASED ACTIVITY [None]
  - ANAEMIA [None]
  - THROMBOSIS [None]
  - PULMONARY THROMBOSIS [None]
